FAERS Safety Report 18764380 (Version 2)
Quarter: 2021Q1

REPORT INFORMATION
  Report Type: Spontaneous
  Country: GB (occurrence: GB)
  Receive Date: 20210120
  Receipt Date: 20210128
  Transmission Date: 20210419
  Serious: Yes (Hospitalization)
  Sender: FDA-Public Use
  Company Number: NVSC2021GB007448

PATIENT
  Age: 44 Year
  Sex: Male

DRUGS (4)
  1. MIRTAZAPINE. [Concomitant]
     Active Substance: MIRTAZAPINE
     Indication: PRODUCT USED FOR UNKNOWN INDICATION
     Dosage: 30 MG, QD (AT NIGHT)
     Route: 065
  2. PARACETAMOL [Suspect]
     Active Substance: ACETAMINOPHEN
     Indication: BACK PAIN
     Dosage: 530 MG, QD (10 TABLETS OF 30MG/500 MG)
     Route: 065
  3. ESOMEPRAZOLE. [Concomitant]
     Active Substance: ESOMEPRAZOLE MAGNESIUM
     Indication: PRODUCT USED FOR UNKNOWN INDICATION
     Dosage: 20 MG, QD
     Route: 065
  4. CODEINE [Suspect]
     Active Substance: CODEINE
     Indication: BACK PAIN
     Dosage: 530 MG, QD (10 TABLETS OF 30MG/500 MG)
     Route: 065

REACTIONS (30)
  - Hypokalaemia [Recovered/Resolved]
  - Muscle spasms [Unknown]
  - Pyrexia [Recovered/Resolved]
  - Tachycardia [Recovered/Resolved]
  - Liver disorder [Recovered/Resolved]
  - Intentional product misuse [Unknown]
  - Non-alcoholic steatohepatitis [Recovered/Resolved]
  - Hypoalbuminaemia [Recovered/Resolved]
  - Malaise [Recovered/Resolved]
  - Lactic acidosis [Recovered/Resolved]
  - Hyperammonaemia [Recovered/Resolved]
  - Sepsis [Recovered/Resolved]
  - Tachypnoea [Recovered/Resolved]
  - Hepatic steatosis [Recovered/Resolved]
  - Pancytopenia [Recovered/Resolved]
  - Somnolence [Recovered/Resolved]
  - General physical health deterioration [Recovered/Resolved]
  - Encephalopathy [Recovered/Resolved]
  - Paraesthesia [Unknown]
  - Weight decreased [Unknown]
  - Myositis [Recovered/Resolved]
  - Peripheral circulatory failure [Recovered/Resolved]
  - Pyroglutamic acidosis [Recovered/Resolved]
  - Metabolic acidosis [Recovered/Resolved]
  - Hepatic cirrhosis [Recovered/Resolved]
  - Confusional state [Recovered/Resolved]
  - Kussmaul respiration [Recovered/Resolved]
  - Lethargy [Unknown]
  - Hypotension [Recovered/Resolved]
  - Deep vein thrombosis [Recovered/Resolved]
